FAERS Safety Report 5727752-2 (Version None)
Quarter: 2008Q2

REPORT INFORMATION
  Report Type: 
  Country: None (occurrence: None)
  Receive Date: 20080501
  Receipt Date: 20071030
  Transmission Date: 20081010
  Serious: Yes (Hospitalization)
  Sender: FDA-Public Use
  Company Number: PHEH2007US13787

PATIENT
  Age: 40 Year
  Sex: Male
  Weight: 126.5 kg

DRUGS (2)
  1. DIOVAN HCT [Suspect]
     Indication: HYPERTENSION
     Dosage: 160MG VAL/12.5MG HCT ; 320MG VAL/25MG HCT, BID, ORAL
     Route: 048
     Dates: start: 20041021, end: 20070808
  2. DIOVAN HCT [Suspect]
     Indication: HYPERTENSION
     Dosage: 160MG VAL/12.5MG HCT ; 320MG VAL/25MG HCT, BID, ORAL
     Route: 048
     Dates: start: 20070808, end: 20070821

REACTIONS (2)
  - LIPASE INCREASED [None]
  - PANCREATITIS ACUTE [None]
